FAERS Safety Report 6313732-5 (Version None)
Quarter: 2009Q3

REPORT INFORMATION
  Report Type: 
  Country: None (occurrence: None)
  Receive Date: 20090817
  Receipt Date: 20090817
  Transmission Date: 20100115
  Serious: Yes (Life-Threatening)
  Sender: FDA-Public Use
  Company Number: None

PATIENT
  Age: 59 Year
  Sex: Male

DRUGS (1)
  1. PROAIR HFA [Suspect]
     Indication: DYSPNOEA
     Dosage: 2 PUFFS 3-4 HOURS PRN INHAL
     Route: 055
     Dates: start: 20090807, end: 20090810

REACTIONS (2)
  - DEVICE FAILURE [None]
  - PRODUCT QUALITY ISSUE [None]
